FAERS Safety Report 12225564 (Version 1)
Quarter: 2016Q1

REPORT INFORMATION
  Report Type: Spontaneous
  Country: US (occurrence: None)
  Receive Date: 20160330
  Receipt Date: 20160330
  Transmission Date: 20160526
  Serious: Yes (Other)
  Sender: FDA-Public Use
  Company Number: None

PATIENT
  Age: 82 Year
  Sex: Male

DRUGS (1)
  1. ZYTIGA [Suspect]
     Active Substance: ABIRATERONE ACETATE
     Indication: PROSTATIC DISORDER
     Route: 048
     Dates: start: 20151223

REACTIONS (3)
  - Hypoaesthesia [None]
  - Fatigue [None]
  - Herpes zoster [None]

NARRATIVE: CASE EVENT DATE: 20160215
